FAERS Safety Report 8768591 (Version 2)
Quarter: 2012Q4

REPORT INFORMATION
  Report Type: 
  Country: NL (occurrence: NL)
  Receive Date: 20120906
  Receipt Date: 20120918
  Transmission Date: 20130627
  Serious: Yes (Death)
  Sender: FDA-Public Use
  Company Number: NL-UCBSA-064791

PATIENT
  Age: 43 Year
  Sex: Male
  Weight: 84 kg

DRUGS (3)
  1. KEPPRA [Suspect]
     Indication: EPILEPSY
     Route: 048
     Dates: start: 20110920, end: 20120412
  2. METHADONE HCL [Concomitant]
     Indication: NEURALGIA
     Dates: start: 20120312, end: 2012
  3. METHADONE HCL [Concomitant]
     Indication: NEURALGIA
     Dates: start: 2012, end: 20120412

REACTIONS (2)
  - Death [Fatal]
  - Convulsion [Fatal]
